FAERS Safety Report 15669254 (Version 2)
Quarter: 2018Q4

REPORT INFORMATION
  Report Type: Spontaneous
  Country: AU (occurrence: AU)
  Receive Date: 20181129
  Receipt Date: 20181213
  Transmission Date: 20190205
  Serious: Yes (Other)
  Sender: FDA-Public Use
  Company Number: AU-LUPIN PHARMACEUTICALS INC.-2018-08222

PATIENT
  Age: 69 Year
  Sex: Female

DRUGS (1)
  1. HYDROXYCHLOROQUINE [Suspect]
     Active Substance: HYDROXYCHLOROQUINE
     Indication: LICHEN PLANOPILARIS
     Dosage: 500 MG, QD, (11.4 MG/KG ACTUAL BODYWEIGHT CUMULATIVE DOSE }440 G))
     Route: 065

REACTIONS (3)
  - Macular degeneration [Unknown]
  - Retinal pigmentation [Unknown]
  - Visual field defect [Unknown]
